FAERS Safety Report 6023505-9 (Version None)
Quarter: 2008Q4

REPORT INFORMATION
  Report Type: 
  Country: None (occurrence: None)
  Receive Date: 20081230
  Receipt Date: 20081223
  Transmission Date: 20090506
  Serious: Yes (Hospitalization)
  Sender: FDA-Public Use
  Company Number: BG-ABBOTT-08P-022-0493956-00

PATIENT
  Age: 58 Year
  Sex: Female

DRUGS (2)
  1. GOPTEN [Suspect]
     Indication: HYPERTENSION
     Route: 048
     Dates: start: 20081101, end: 20081209
  2. TERTENSIF [Concomitant]
     Indication: HYPERTENSION
     Route: 048
     Dates: start: 20010101

REACTIONS (3)
  - FACE OEDEMA [None]
  - OEDEMA PERIPHERAL [None]
  - PRURITUS [None]
